FAERS Safety Report 6208139-5 (Version None)
Quarter: 2009Q2

REPORT INFORMATION
  Report Type: 
  Country: None (occurrence: None)
  Receive Date: 20090529
  Receipt Date: 20090518
  Transmission Date: 20091009
  Serious: Yes (Hospitalization)
  Sender: FDA-Public Use
  Company Number: US-ROCHE-634125

PATIENT
  Sex: Female

DRUGS (2)
  1. PEG-INTERFERON A-2A (RO 25-8310) [Suspect]
     Indication: HEPATITIS C
     Dosage: FORM: PFS
     Route: 065
     Dates: start: 20090102, end: 20090406
  2. RIBASPHERE [Suspect]
     Indication: HEPATITIS C
     Dosage: DIVIDED DOSES
     Route: 065
     Dates: start: 20090102, end: 20090406

REACTIONS (6)
  - CONFUSIONAL STATE [None]
  - DEPRESSION [None]
  - FALL [None]
  - HEMIPARESIS [None]
  - PSYCHIATRIC SYMPTOM [None]
  - SPEECH DISORDER [None]
